FAERS Safety Report 25584934 (Version 1)
Quarter: 2025Q3

REPORT INFORMATION
  Report Type: Spontaneous
  Country: CN (occurrence: CN)
  Receive Date: 20250721
  Receipt Date: 20250721
  Transmission Date: 20251020
  Serious: Yes (Other)
  Sender: ROCHE
  Company Number: CN-002147023-NVSC2025CN113829

PATIENT
  Age: 73 Year
  Sex: Male

DRUGS (4)
  1. RANIBIZUMAB [Suspect]
     Active Substance: RANIBIZUMAB
     Indication: Retinal vein occlusion
     Route: 050
     Dates: start: 20250512
  2. RANIBIZUMAB [Suspect]
     Active Substance: RANIBIZUMAB
     Indication: Cystoid macular oedema
     Route: 050
     Dates: start: 20250627
  3. DEXAMETHASONE [Concomitant]
     Active Substance: DEXAMETHASONE
     Indication: Retinal vein occlusion
     Route: 065
     Dates: start: 20250512
  4. DEXAMETHASONE [Concomitant]
     Active Substance: DEXAMETHASONE
     Indication: Cystoid macular oedema

REACTIONS (6)
  - Retinal exudates [Unknown]
  - Visual acuity reduced [Unknown]
  - Angiopathy [Unknown]
  - Vascular insufficiency [Unknown]
  - Visual impairment [Unknown]
  - Vasoconstriction [Unknown]

NARRATIVE: CASE EVENT DATE: 20250513
